FAERS Safety Report 8250971-0 (Version None)
Quarter: 2012Q1

REPORT INFORMATION
  Report Type: 
  Country: None (occurrence: None)
  Receive Date: 20120319
  Receipt Date: 20090626
  Transmission Date: 20120608
  Serious: Yes (Other)
  Sender: FDA-Public Use
  Company Number: PHEH2009US06549

PATIENT
  Age: 70 Year
  Sex: Male
  Weight: 196 kg

DRUGS (9)
  1. KLOR-CON [Concomitant]
  2. NOVOLOG [Concomitant]
  3. LANTUS [Concomitant]
  4. LABETALOL HCL [Concomitant]
  5. LISINOPRIL AND HYDROCHLOROTHIAZIDE [Concomitant]
  6. TEKTURNA [Suspect]
     Indication: HYPERTENSION
     Dosage: 150 MG, QD, ORAL ; 300 MG, QD, ORAL
     Route: 048
     Dates: start: 20090528
  7. TEKTURNA [Suspect]
     Indication: HYPERTENSION
     Dosage: 150 MG, QD, ORAL ; 300 MG, QD, ORAL
     Route: 048
     Dates: end: 20090602
  8. NORVASC [Concomitant]
  9. ASPIRIN [Concomitant]

REACTIONS (3)
  - PERIORBITAL OEDEMA [None]
  - ANGIOEDEMA [None]
  - FACE OEDEMA [None]
